FAERS Safety Report 7078858-X (Version None)
Quarter: 2010Q4

REPORT INFORMATION
  Report Type: 
  Country: None (occurrence: None)
  Receive Date: 20101102
  Receipt Date: 20101026
  Transmission Date: 20110411
  Serious: Yes (Other)
  Sender: FDA-Public Use
  Company Number: US-PFIZER INC-2010137309

PATIENT
  Sex: Female

DRUGS (2)
  1. TOVIAZ [Suspect]
  2. TOVIAZ [Suspect]
     Dosage: 4 MG, 1X/DAY

REACTIONS (2)
  - DRY MOUTH [None]
  - SPEECH DISORDER [None]
